FAERS Safety Report 10520671 (Version 4)
Quarter: 2015Q1

REPORT INFORMATION
  Report Type: Report from Study
  Country: US (occurrence: US)
  Receive Date: 20141015
  Receipt Date: 20150327
  Transmission Date: 20150720
  Serious: Yes (Death, Hospitalization)
  Sender: FDA-Public Use
  Company Number: PHEH2014US018593

PATIENT
  Age: 72 Year
  Sex: Female

DRUGS (3)
  1. TOBI [Suspect]
     Active Substance: TOBRAMYCIN
     Indication: OBSTRUCTIVE AIRWAYS DISORDER
     Dosage: 300 MG, BID (TWICE A DAY)
     Route: 055
  2. TOBI [Suspect]
     Active Substance: TOBRAMYCIN
     Indication: BRONCHIECTASIS
  3. TOBI [Suspect]
     Active Substance: TOBRAMYCIN
     Indication: ASTHMA

REACTIONS (6)
  - Speech disorder [Unknown]
  - Lung disorder [Unknown]
  - Malaise [None]
  - Cough [Unknown]
  - Death [Fatal]
  - Product use issue [Unknown]

NARRATIVE: CASE EVENT DATE: 20150315
